FAERS Safety Report 4697911-9 (Version None)
Quarter: 2005Q2

REPORT INFORMATION
  Report Type: 
  Country: None (occurrence: None)
  Receive Date: 20050621
  Receipt Date: 20050616
  Transmission Date: 20051028
  Serious: Yes (Hospitalization)
  Sender: FDA-Public Use
  Company Number: JP-2005-009173

PATIENT
  Age: 70 Year
  Sex: Male

DRUGS (6)
  1. PROSCOPE 300 (IOPROMIDE) INFUSION [Suspect]
     Indication: COMPUTERISED TOMOGRAM
     Dosage: 100 ML 1 DOSE, IV DRIP
     Route: 041
     Dates: start: 20050519, end: 20050519
  2. TICLOPIDINE HCL [Concomitant]
  3. SELBEX (TEPRENONE) [Concomitant]
  4. ZYLORIC      FAES [Concomitant]
  5. NIVADIL (NILVADIPINE) [Concomitant]
  6. LIPOVAS  BANYU  (SIMVASTATIN) [Concomitant]

REACTIONS (4)
  - DRUG ERUPTION [None]
  - EXANTHEM [None]
  - INFUSION RELATED REACTION [None]
  - PRURITUS [None]
